FAERS Safety Report 18732122 (Version 1)
Quarter: 2021Q1

REPORT INFORMATION
  Report Type: Report from Study
  Country: GB (occurrence: GB)
  Receive Date: 20210112
  Receipt Date: 20210112
  Transmission Date: 20210419
  Serious: Yes (Hospitalization)
  Sender: FDA-Public Use
  Company Number: GB-MYLANLABS-2021M1001177

PATIENT
  Age: 9 Year
  Sex: Male

DRUGS (4)
  1. ARIPIPRAZOLE. [Suspect]
     Active Substance: ARIPIPRAZOLE
     Indication: CHILDHOOD PSYCHOSIS
     Dosage: 3 MILLIGRAM, QD INITIAL DOSE NOT STATED; GRADUALLY INCREASED TO 3MG ONCE DAILY
     Route: 065
  2. SERTRALINE [Suspect]
     Active Substance: SERTRALINE HYDROCHLORIDE
     Indication: ANXIETY
     Dosage: UNK
     Route: 065
  3. OLANZAPINE. [Suspect]
     Active Substance: OLANZAPINE
     Indication: CHILDHOOD PSYCHOSIS
     Dosage: UNK
     Route: 065
  4. LURASIDONE [Suspect]
     Active Substance: LURASIDONE
     Indication: CHILDHOOD PSYCHOSIS
     Dosage: UNK
     Route: 065

REACTIONS (2)
  - Agitation [Unknown]
  - Drug ineffective [Unknown]
